FAERS Safety Report 21094048 (Version 1)
Quarter: 2022Q3

REPORT INFORMATION
  Report Type: Spontaneous
  Country: US (occurrence: None)
  Receive Date: 20220715
  Receipt Date: 20220715
  Transmission Date: 20221026
  Serious: Yes (unspecified)
  Sender: FDA-Public Use
  Company Number: None

PATIENT
  Age: 42 Year
  Sex: Female

DRUGS (1)
  1. STELARA [Suspect]
     Active Substance: USTEKINUMAB
     Indication: Psoriatic arthropathy
     Dosage: OTHER FREQUENCY : EVERY12WEEK;?
     Route: 058
     Dates: start: 20220329

REACTIONS (7)
  - Infectious mononucleosis [None]
  - Epstein-Barr virus infection reactivation [None]
  - Lymphadenopathy [None]
  - Scab [None]
  - Breast ulceration [None]
  - Breast discharge [None]
  - Mastitis [None]

NARRATIVE: CASE EVENT DATE: 20220530
